FAERS Safety Report 4345621-X (Version None)
Quarter: 2004Q2

REPORT INFORMATION
  Report Type: 
  Country: None (occurrence: None)
  Receive Date: 20040421
  Receipt Date: 20040410
  Transmission Date: 20050107
  Serious: Yes (Hospitalization)
  Sender: FDA-Public Use
  Company Number: 04P-163-0257022-00

PATIENT
  Age: 78 Year
  Sex: Male
  Weight: 99.7913 kg

DRUGS (7)
  1. MAVIK [Suspect]
     Indication: MYOCARDIAL INFARCTION
     Dosage: SEE IMAGE
     Dates: start: 20020401
  2. MAVIK [Suspect]
     Indication: MYOCARDIAL INFARCTION
     Dosage: SEE IMAGE
     Dates: start: 20040101
  3. PREDNISONE [Concomitant]
  4. PRAVASTATIN SODIUM [Concomitant]
  5. HYOSCYAMINE SULFATE [Concomitant]
  6. SINGULAIR [Concomitant]
  7. BUDESONIDE [Concomitant]

REACTIONS (21)
  - ABDOMINAL DISTENSION [None]
  - ASTHENIA [None]
  - BLOOD PRESSURE DECREASED [None]
  - BLOOD UREA INCREASED [None]
  - COUGH [None]
  - DIFFICULTY IN WALKING [None]
  - DYSPNOEA [None]
  - FALL [None]
  - FLUID RETENTION [None]
  - HEART RATE IRREGULAR [None]
  - OEDEMA PERIPHERAL [None]
  - PAIN IN EXTREMITY [None]
  - PNEUMONIA [None]
  - PULMONARY EMBOLISM [None]
  - PYREXIA [None]
  - SYNCOPE [None]
  - THIRST [None]
  - THROMBOSIS [None]
  - TRAUMATIC HAEMATOMA [None]
  - URINE OUTPUT DECREASED [None]
  - WEIGHT INCREASED [None]
